FAERS Safety Report 25150000 (Version 1)
Quarter: 2025Q2

REPORT INFORMATION
  Report Type: Spontaneous
  Country: CO (occurrence: CO)
  Receive Date: 20250402
  Receipt Date: 20250402
  Transmission Date: 20250717
  Serious: Yes (Other)
  Sender: PFIZER
  Company Number: CO-PFIZER INC-202500068014

PATIENT
  Age: 35 Year
  Sex: Male

DRUGS (1)
  1. CIBINQO [Suspect]
     Active Substance: ABROCITINIB
     Indication: Dermatitis atopic
     Dosage: 200 MG, DAILY
     Dates: start: 202410

REACTIONS (3)
  - Renal failure [Unknown]
  - Dyslipidaemia [Unknown]
  - Glucose tolerance impaired [Unknown]
